FAERS Safety Report 14137502 (Version 2)
Quarter: 2018Q1

REPORT INFORMATION
  Report Type: Report from Study
  Country: US (occurrence: US)
  Receive Date: 20171027
  Receipt Date: 20180110
  Transmission Date: 20180508
  Serious: Yes (Death, Other)
  Sender: FDA-Public Use
  Company Number: US-VIFOR (INTERNATIONAL) INC.-VIT-2017-03991

PATIENT
  Sex: Female
  Weight: 138.47 kg

DRUGS (7)
  1. VELTASSA [Suspect]
     Active Substance: PATIROMER
     Indication: HYPERKALAEMIA
     Route: 048
     Dates: start: 20170203, end: 2017
  2. METOPROLOL. [Concomitant]
     Active Substance: METOPROLOL
  3. CLONIDINE. [Concomitant]
     Active Substance: CLONIDINE
  4. ERGOCALCIFEROL. [Concomitant]
     Active Substance: ERGOCALCIFEROL
  5. NOVOLOG [Concomitant]
     Active Substance: INSULIN ASPART
  6. GLIPIZIDE. [Concomitant]
     Active Substance: GLIPIZIDE
  7. LANTUS [Concomitant]
     Active Substance: INSULIN GLARGINE
     Dosage: 70

REACTIONS (6)
  - Renal failure [Fatal]
  - Feeding disorder [Unknown]
  - Decubitus ulcer [Unknown]
  - Vomiting [Unknown]
  - Nausea [Unknown]
  - Anuria [Unknown]

NARRATIVE: CASE EVENT DATE: 2017
